FAERS Safety Report 10982925 (Version 1)
Quarter: 2015Q2

REPORT INFORMATION
  Report Type: Spontaneous
  Country: US (occurrence: None)
  Receive Date: 20150402
  Receipt Date: 20150402
  Transmission Date: 20150821
  Serious: Yes (Other)
  Sender: FDA-Public Use
  Company Number: None

PATIENT
  Age: 57 Year
  Sex: Female

DRUGS (2)
  1. SOVALDI [Suspect]
     Active Substance: SOFOSBUVIR
     Dosage: 400 MG, ONCE DAILY, BY MOUTH
     Route: 048
  2. OLYSIO [Suspect]
     Active Substance: SIMEPREVIR
     Indication: CHRONIC HEPATITIS
     Dosage: 150 MG, ONCE DAILY, BY MOUTH
     Route: 048
     Dates: start: 20141212

REACTIONS (2)
  - Photosensitivity reaction [None]
  - Chapped lips [None]

NARRATIVE: CASE EVENT DATE: 20150401
